FAERS Safety Report 4740144-8 (Version None)
Quarter: 2005Q3

REPORT INFORMATION
  Report Type: 
  Country: None (occurrence: None)
  Receive Date: 20050810
  Receipt Date: 20050203
  Transmission Date: 20060218
  Serious: No
  Sender: FDA-Public Use
  Company Number: US-GLAXOSMITHKLINE-A0543703A

PATIENT
  Age: 58 Year
  Sex: Female

DRUGS (2)
  1. PAXIL [Suspect]
     Indication: ANXIETY
     Dosage: 60MG PER DAY
     Route: 048
     Dates: end: 20050101
  2. RISPERDAL [Concomitant]

REACTIONS (4)
  - ABNORMAL DREAMS [None]
  - CHILLS [None]
  - HYPERHIDROSIS [None]
  - INSOMNIA [None]
